FAERS Safety Report 7447058-3 (Version None)
Quarter: 2011Q2

REPORT INFORMATION
  Report Type: 
  Country: None (occurrence: None)
  Receive Date: 20110429
  Receipt Date: 20110422
  Transmission Date: 20111010
  Serious: Yes (Other)
  Sender: FDA-Public Use
  Company Number: US-B.I. PHARMACEUTICALS,INC./RIDGEFIELD-2011-BP-11542BP

PATIENT
  Sex: Female

DRUGS (9)
  1. CRESTOR [Suspect]
     Dates: end: 20110323
  2. LASIX [Suspect]
     Dates: start: 20110309
  3. ZETIA [Concomitant]
  4. PRADAXA [Suspect]
     Dates: start: 20110309, end: 20110323
  5. AZITHROMYCIN [Suspect]
     Indication: PNEUMONIA
     Dates: start: 20110309
  6. CARDIZEM [Suspect]
     Dates: start: 20110309
  7. NEXIUM [Concomitant]
  8. CEFTIN [Suspect]
     Indication: PNEUMONIA
     Dates: start: 20110309
  9. MULTAQ [Suspect]
     Indication: ATRIAL FIBRILLATION
     Dosage: 800 MG
     Route: 048
     Dates: start: 20110309, end: 20110323

REACTIONS (5)
  - DIARRHOEA [None]
  - DIZZINESS [None]
  - NAUSEA [None]
  - HEPATOCELLULAR INJURY [None]
  - FATIGUE [None]
